FAERS Safety Report 8810963 (Version 1)
Quarter: 2012Q4

REPORT INFORMATION
  Report Type: 
  Country: AU (occurrence: AU)
  Receive Date: 20120927
  Receipt Date: 20120927
  Transmission Date: 20130627
  Serious: Yes (Other)
  Sender: FDA-Public Use
  Company Number: AU-JNJFOC-20120908681

PATIENT
  Age: 31 Year
  Sex: Male

DRUGS (1)
  1. PALIPERIDONE PALMITATE [Suspect]
     Indication: PRODUCT USED FOR UNKNOWN INDICATION
     Route: 030
     Dates: start: 20110321, end: 20110603

REACTIONS (2)
  - Psychotic disorder [Not Recovered/Not Resolved]
  - Drug ineffective [Not Recovered/Not Resolved]
